FAERS Safety Report 9057466 (Version 4)
Quarter: 2013Q2

REPORT INFORMATION
  Report Type: Spontaneous
  Country: US (occurrence: US)
  Receive Date: 20130204
  Receipt Date: 20130509
  Transmission Date: 20140414
  Serious: Yes (Hospitalization, Other)
  Sender: FDA-Public Use
  Company Number: US-PFIZER INC-2013041182

PATIENT
  Age: 65 Year
  Sex: Female
  Weight: 52.15 kg

DRUGS (4)
  1. LYRICA [Suspect]
     Indication: PAIN
     Dosage: 100 MG, 3X/DAY
     Route: 048
     Dates: start: 2012
  2. LYRICA [Suspect]
     Indication: HERPES ZOSTER
     Dosage: 100 MG, 2X/DAY
     Route: 048
  3. LYRICA [Suspect]
     Dosage: 350 MG, 3X/DAY
  4. ATIVAN [Concomitant]
     Dosage: UNK

REACTIONS (23)
  - Overdose [Unknown]
  - Cardiac failure [Unknown]
  - Circulatory collapse [Unknown]
  - Loss of consciousness [Unknown]
  - Fall [Unknown]
  - Limb injury [Unknown]
  - Back injury [Unknown]
  - Fluid retention [Unknown]
  - Weight increased [Recovered/Resolved]
  - Local swelling [Recovered/Resolved]
  - Herpes zoster [Unknown]
  - Oedema peripheral [Recovered/Resolved]
  - Swelling face [Unknown]
  - Weight decreased [Unknown]
  - Pruritus [Unknown]
  - Skin reaction [Unknown]
  - Rash [Unknown]
  - Headache [Recovering/Resolving]
  - Nausea [Unknown]
  - Diarrhoea [Unknown]
  - Insomnia [Unknown]
  - Fatigue [Unknown]
  - Feeling abnormal [Unknown]
